FAERS Safety Report 7665825-8 (Version None)
Quarter: 2011Q3

REPORT INFORMATION
  Report Type: 
  Country: None (occurrence: None)
  Receive Date: 20110806
  Receipt Date: 20110325
  Transmission Date: 20111222
  Serious: No
  Sender: FDA-Public Use
  Company Number: US-ABBOTT-11P-163-0714222-00

PATIENT
  Sex: Male
  Weight: 88.53 kg

DRUGS (7)
  1. NIASPAN [Suspect]
     Indication: CORONARY ARTERY DISEASE
     Dosage: IN THE AM
     Route: 048
     Dates: start: 20070101
  2. BYSTOLIC [Concomitant]
     Indication: PRODUCT USED FOR UNKNOWN INDICATION
     Route: 048
  3. LIPITOR [Concomitant]
     Indication: PRODUCT USED FOR UNKNOWN INDICATION
     Route: 048
  4. UNKNOWN MEDICATION [Concomitant]
     Indication: BLOOD PRESSURE
     Route: 048
  5. NIASPAN [Suspect]
     Dosage: IN THE AM
     Route: 048
  6. VIT D [Concomitant]
     Indication: PRODUCT USED FOR UNKNOWN INDICATION
     Route: 048
  7. NIASPAN [Suspect]
     Dosage: IN THE AM
     Route: 048

REACTIONS (7)
  - DYSPNOEA [None]
  - FLUSHING [None]
  - MYALGIA [None]
  - HERPES ZOSTER [None]
  - DIARRHOEA [None]
  - FATIGUE [None]
  - DIZZINESS [None]
